FAERS Safety Report 6720145-0 (Version None)
Quarter: 2010Q2

REPORT INFORMATION
  Report Type: 
  Country: None (occurrence: None)
  Receive Date: 20100507
  Receipt Date: 20100423
  Transmission Date: 20101027
  Serious: Yes (Hospitalization)
  Sender: FDA-Public Use
  Company Number: 011175

PATIENT
  Weight: 66 kg

DRUGS (1)
  1. CERTOLIZUMAB PEGOL (CERTOLIZUMAB PEGOL) [Suspect]
     Dosage: 400 MG 1 X 2 WEEKS, SUBCUTANEOUS
     Route: 058
     Dates: start: 20091123

REACTIONS (2)
  - BASAL CELL CARCINOMA [None]
  - TRANSIENT ISCHAEMIC ATTACK [None]
